FAERS Safety Report 8293299-5 (Version None)
Quarter: 2012Q2

REPORT INFORMATION
  Report Type: 
  Country: None (occurrence: None)
  Receive Date: 20120417
  Receipt Date: 20110526
  Transmission Date: 20120825
  Serious: No
  Sender: FDA-Public Use
  Company Number: US-ASTRAZENECA-2011SE32831

PATIENT
  Age: 55 Year
  Sex: Female
  Weight: 72.6 kg

DRUGS (3)
  1. VASOTEC [Concomitant]
  2. LOVASTATIN [Concomitant]
  3. NEXIUM [Suspect]
     Indication: GASTROOESOPHAGEAL REFLUX DISEASE
     Route: 048
     Dates: start: 20110101

REACTIONS (6)
  - BLOOD GLUCOSE INCREASED [None]
  - DRUG INEFFECTIVE [None]
  - GASTROOESOPHAGEAL REFLUX DISEASE [None]
  - GLYCOSYLATED HAEMOGLOBIN INCREASED [None]
  - OROPHARYNGEAL PAIN [None]
  - WEIGHT INCREASED [None]
